FAERS Safety Report 20177791 (Version 1)
Quarter: 2021Q4

REPORT INFORMATION
  Report Type: Spontaneous
  Country: JP (occurrence: JP)
  Receive Date: 20211213
  Receipt Date: 20211213
  Transmission Date: 20220303
  Serious: Yes (Other)
  Sender: FDA-Public Use
  Company Number: JP-BAUSCH-BL-2021-041062

PATIENT

DRUGS (1)
  1. BEPOTASTINE [Suspect]
     Active Substance: BEPOTASTINE
     Indication: Product used for unknown indication
     Route: 047

REACTIONS (1)
  - Urinary retention [Unknown]
